FAERS Safety Report 5549524-4 (Version None)
Quarter: 2007Q4

REPORT INFORMATION
  Report Type: 
  Country: None (occurrence: None)
  Receive Date: 20071212
  Receipt Date: 20071205
  Transmission Date: 20080405
  Serious: Yes (Other)
  Sender: FDA-Public Use
  Company Number: PHHO2007DE14524

PATIENT

DRUGS (4)
  1. CYCLOSPORINE [Suspect]
     Indication: KERATOPLASTY
     Dosage: 100 MG, BID
     Route: 048
     Dates: start: 20050930, end: 20070730
  2. DECORTIN [Concomitant]
     Dosage: 7.5 MG, QD
     Route: 048
     Dates: start: 20070101
  3. SIMULECT [Suspect]
     Indication: KERATOPLASTY
     Dosage: CODE NOT BROKEN
     Route: 042
     Dates: start: 20051004, end: 20051004
  4. SIMULECT [Suspect]
     Dosage: CODE NOT BROKEN
     Route: 042
     Dates: start: 20050930, end: 20050930

REACTIONS (1)
  - DEEP VEIN THROMBOSIS [None]
